FAERS Safety Report 21811277 (Version 1)
Quarter: 2023Q1

REPORT INFORMATION
  Report Type: Spontaneous
  Country: US (occurrence: US)
  Receive Date: 20230103
  Receipt Date: 20230103
  Transmission Date: 20230418
  Serious: No
  Sender: FDA-Public Use
  Company Number: US-PFIZER INC-202201399906

PATIENT
  Age: 76 Year
  Sex: Female
  Weight: 79.38 kg

DRUGS (4)
  1. PAXLOVID [Suspect]
     Active Substance: NIRMATRELVIR\RITONAVIR
     Indication: COVID-19 treatment
     Dosage: [PF-07321332 300 MG]/[RITONAVIR 100 MG]; 2X/DAY
     Dates: start: 20221226
  2. ATORVASTATIN [Concomitant]
     Active Substance: ATORVASTATIN
     Indication: Blood cholesterol increased
     Dosage: 80 MG, 1X/DAY BEEN A WHILE SINCE STARTED PRODUCT
  3. FLUOXETINE [Concomitant]
     Active Substance: FLUOXETINE HYDROCHLORIDE
     Indication: Anxiety
     Dosage: 20 MG, 1X/DAY, STARTED A LONG TIME AGO
  4. METOPROLOL [Concomitant]
     Active Substance: METOPROLOL
     Indication: Anxiety
     Dosage: 25 MG, 2X/DAY (50MG BREAK IT IN HALF, TAKE IT TWICE A DAY)
     Dates: start: 1990

REACTIONS (2)
  - Diarrhoea [Not Recovered/Not Resolved]
  - Condition aggravated [Not Recovered/Not Resolved]

NARRATIVE: CASE EVENT DATE: 20221228
